FAERS Safety Report 8637708 (Version 3)
Quarter: 2013Q4

REPORT INFORMATION
  Report Type: Spontaneous
  Country: CA (occurrence: CA)
  Receive Date: 20120614
  Receipt Date: 20131108
  Transmission Date: 20140711
  Serious: Yes (Other)
  Sender: FDA-Public Use
  Company Number: CA-MERCK-2012SP031215

PATIENT
  Age: 22 Year
  Sex: Female
  Weight: 80 kg

DRUGS (1)
  1. SAPHRIS [Suspect]
     Indication: BIPOLAR DISORDER
     Dosage: 5 MG, UNK
     Route: 060
     Dates: start: 20120402, end: 20120514

REACTIONS (4)
  - Liver function test abnormal [Recovered/Resolved]
  - Infectious mononucleosis [Unknown]
  - Convulsion [Recovered/Resolved]
  - Underdose [Recovered/Resolved]
